FAERS Safety Report 23185252 (Version 2)
Quarter: 2024Q2

REPORT INFORMATION
  Report Type: Report from Study
  Country: US (occurrence: US)
  Receive Date: 20231115
  Receipt Date: 20240413
  Transmission Date: 20240716
  Serious: No
  Sender: FDA-Public Use
  Company Number: US-AstraZeneca-CH-00505682A

PATIENT
  Sex: Female

DRUGS (1)
  1. ULTOMIRIS [Suspect]
     Active Substance: RAVULIZUMAB-CWVZ
     Indication: Paroxysmal nocturnal haemoglobinuria
     Dosage: UNK
     Route: 042

REACTIONS (8)
  - Feeling abnormal [Unknown]
  - Wound [Unknown]
  - Fall [Unknown]
  - Fear [Unknown]
  - Illness [Unknown]
  - Emotional disorder [Unknown]
  - Crying [Unknown]
  - Skin abrasion [Unknown]
